FAERS Safety Report 13143394 (Version 3)
Quarter: 2018Q2

REPORT INFORMATION
  Report Type: Report from Study
  Country: CN (occurrence: CN)
  Receive Date: 20170123
  Receipt Date: 20180405
  Transmission Date: 20180711
  Serious: Yes (Hospitalization, Other)
  Sender: FDA-Public Use
  Company Number: PHHY2016CN159926

PATIENT
  Age: 39 Year
  Sex: Female
  Weight: 48 kg

DRUGS (104)
  1. TACROLIMUS. [Suspect]
     Active Substance: TACROLIMUS
     Indication: IMMUNOSUPPRESSANT DRUG THERAPY
     Dosage: 6 MG, QD
     Route: 065
     Dates: start: 20160930, end: 20160930
  2. TACROLIMUS. [Suspect]
     Active Substance: TACROLIMUS
     Dosage: 2.5 MG, QD
     Route: 065
     Dates: start: 20161016, end: 20161017
  3. GANCICLOVIR. [Concomitant]
     Active Substance: GANCICLOVIR
     Indication: INFECTION
     Dosage: 1 G, TID
     Route: 048
     Dates: start: 20160418, end: 20160418
  4. GENTAMICIN SULFATE. [Concomitant]
     Active Substance: GENTAMICIN SULFATE
     Indication: INFECTION
     Dosage: 16 IU, QD
     Route: 042
     Dates: start: 20160330, end: 20160330
  5. SODIUM BICARBONATE. [Concomitant]
     Active Substance: SODIUM BICARBONATE
     Indication: PRODUCT USED FOR UNKNOWN INDICATION
     Dosage: 0.5 G, BID
     Route: 048
     Dates: start: 20160418, end: 20160418
  6. MAGNESIUM ISOGLYCYRRHIZINATE [Concomitant]
     Active Substance: MAGNESIUM ISOGLYCYRRHIZINATE
     Indication: PRODUCT USED FOR UNKNOWN INDICATION
     Dosage: 100 MG, BID
     Route: 042
     Dates: start: 20160330, end: 20160330
  7. RECOMBINANT HUMAN ERYTHROPOIETIN [Concomitant]
     Active Substance: ERYTHROPOIETIN
     Indication: PRODUCT USED FOR UNKNOWN INDICATION
     Dosage: 400 IU, QD
     Route: 058
     Dates: start: 20160402, end: 20160402
  8. CEFOXITIN [Concomitant]
     Active Substance: CEFOXITIN SODIUM
     Indication: INFECTION
     Dosage: 2 G, QD
     Route: 042
     Dates: start: 20160329, end: 20160329
  9. MOSAPRIDE CITRATE [Concomitant]
     Active Substance: MOSAPRIDE CITRATE
     Indication: GASTROINTESTINAL MOTILITY DISORDER
     Dosage: 5 MG, TID
     Route: 048
     Dates: start: 20160405
  10. MYFORTIC [Suspect]
     Active Substance: MYCOPHENOLATE SODIUM
     Dosage: 1260 MG, QD
     Route: 065
     Dates: start: 20170217
  11. BASILIXIMAB [Suspect]
     Active Substance: BASILIXIMAB
     Indication: IMMUNOSUPPRESSANT DRUG THERAPY
     Dosage: 20 MG, QD
     Route: 065
     Dates: start: 20161004, end: 20161004
  12. METHYLPREDNISOLONE. [Suspect]
     Active Substance: METHYLPREDNISOLONE
     Dosage: 500 MG, QD
     Route: 065
     Dates: start: 20161001, end: 20161002
  13. PREDNISONE. [Suspect]
     Active Substance: PREDNISONE
     Dosage: 25 MG, QD
     Route: 065
     Dates: start: 20161009, end: 20161015
  14. TACROLIMUS. [Suspect]
     Active Substance: TACROLIMUS
     Dosage: 8 MG, QD
     Route: 065
     Dates: start: 20161018, end: 20161018
  15. TACROLIMUS. [Suspect]
     Active Substance: TACROLIMUS
     Dosage: 2 MG, QD
     Route: 065
     Dates: start: 20170217
  16. METOPROLOL TARTRATE. [Concomitant]
     Active Substance: METOPROLOL TARTRATE
     Indication: BLOOD PRESSURE INCREASED
     Dosage: 25 MG, QD
     Route: 042
     Dates: start: 20160401, end: 20160401
  17. SODIUM BICARBONATE. [Concomitant]
     Active Substance: SODIUM BICARBONATE
     Dosage: 0.5 G, BID
     Route: 048
     Dates: start: 20160418
  18. TORASEMIDE [Concomitant]
     Active Substance: TORSEMIDE
     Dosage: 10 MG, QD
     Route: 042
     Dates: start: 20160405, end: 20160405
  19. LIDOCAINE HYDROCHLORIDE. [Concomitant]
     Active Substance: LIDOCAINE HYDROCHLORIDE
     Indication: ANAESTHESIA
     Dosage: 10 ML, QD
     Route: 042
     Dates: start: 20160330, end: 20160330
  20. INSULIN [Concomitant]
     Active Substance: INSULIN NOS
     Dosage: 6 U, BID
     Route: 042
     Dates: start: 20160330, end: 20160330
  21. NORADRENALINA [Concomitant]
     Indication: BLOOD PRESSURE INCREASED
     Dosage: 4 MG, QD
     Route: 042
     Dates: start: 20160330, end: 20160330
  22. CEFOXITIN [Concomitant]
     Active Substance: CEFOXITIN SODIUM
     Indication: INFECTION PROPHYLAXIS
     Dosage: 2 G, TID
     Route: 042
     Dates: start: 20160330, end: 20160330
  23. CEFOXITIN [Concomitant]
     Active Substance: CEFOXITIN SODIUM
     Dosage: 2 G, BID
     Route: 042
     Dates: start: 20160406
  24. REMIFENTANIL HYDROCHLORIDE. [Concomitant]
     Active Substance: REMIFENTANIL HYDROCHLORIDE
     Indication: ANAESTHESIA
     Dosage: 2 MG, QD
     Route: 042
     Dates: start: 20160330, end: 20160330
  25. MYFORTIC [Suspect]
     Active Substance: MYCOPHENOLATE SODIUM
     Indication: RENAL TRANSPLANT
     Dosage: 1080 MG, QD
     Route: 065
  26. MYFORTIC [Suspect]
     Active Substance: MYCOPHENOLATE SODIUM
     Dosage: 1440 MG, QD
     Route: 065
     Dates: start: 20161001, end: 20161027
  27. PREDNISONE. [Suspect]
     Active Substance: PREDNISONE
     Indication: IMMUNOSUPPRESSANT DRUG THERAPY
     Dosage: 30 MG, QD
     Route: 065
     Dates: start: 20161003, end: 20161003
  28. PREDNISONE. [Suspect]
     Active Substance: PREDNISONE
     Dosage: 20 MG, QD
     Route: 065
     Dates: start: 20161016, end: 20161027
  29. HEPARIN SODIUM. [Concomitant]
     Active Substance: HEPARIN SODIUM
     Indication: PRODUCT USED FOR UNKNOWN INDICATION
     Dosage: 25000 U, QD
     Route: 042
     Dates: start: 20160330, end: 20160330
  30. HEPARIN SODIUM. [Concomitant]
     Active Substance: HEPARIN SODIUM
     Dosage: 37500 U, QD
     Route: 042
     Dates: start: 20160406, end: 20160406
  31. GENTAMICIN SULFATE. [Concomitant]
     Active Substance: GENTAMICIN SULFATE
     Dosage: 8 IU, TID
     Route: 055
     Dates: start: 20160409, end: 20160409
  32. CALCIUM [Concomitant]
     Active Substance: CALCIUM
     Indication: PRODUCT USED FOR UNKNOWN INDICATION
     Dosage: 20 ML, QD
     Route: 042
     Dates: start: 20160330, end: 20160330
  33. POTASSIUM CHLORIDE. [Concomitant]
     Active Substance: POTASSIUM CHLORIDE
     Dosage: 1 G, BID
     Route: 042
     Dates: start: 20160413
  34. SODIUM LACTATE. [Concomitant]
     Active Substance: SODIUM LACTATE
     Indication: PRODUCT USED FOR UNKNOWN INDICATION
     Dosage: 500 ML, QID
     Route: 042
     Dates: start: 20160329, end: 20160329
  35. SODIUM LACTATE. [Concomitant]
     Active Substance: SODIUM LACTATE
     Dosage: 500 ML, QD
     Route: 042
     Dates: start: 20160401, end: 20160401
  36. TORASEMIDE [Concomitant]
     Active Substance: TORSEMIDE
     Indication: POLYURIA
     Dosage: 10 MG, BID
     Route: 042
     Dates: start: 20160402, end: 20160403
  37. NIFEDIPINE. [Concomitant]
     Active Substance: NIFEDIPINE
     Dosage: 30 MG, QD
     Route: 048
     Dates: start: 20160401, end: 20160401
  38. NIFEDIPINE. [Concomitant]
     Active Substance: NIFEDIPINE
     Dosage: 30 MG, QD
     Route: 048
     Dates: start: 20160418, end: 20160418
  39. ETOMIDATE. [Concomitant]
     Active Substance: ETOMIDATE
     Indication: ANAESTHESIA
     Dosage: 10 ML, QD
     Route: 042
     Dates: start: 20160330, end: 20160330
  40. CISATRACURIUM BESILATE [Concomitant]
     Active Substance: CISATRACURIUM BESYLATE
     Indication: ANAESTHESIA
     Dosage: 20 MG, QD
     Route: 042
     Dates: start: 20160330, end: 20160330
  41. CEFOXITIN [Concomitant]
     Active Substance: CEFOXITIN SODIUM
     Dosage: 2 MG, BID
     Route: 042
     Dates: start: 20160330, end: 20160331
  42. MYFORTIC [Suspect]
     Active Substance: MYCOPHENOLATE SODIUM
     Indication: IMMUNOSUPPRESSANT DRUG THERAPY
     Dosage: 1440 MG, QD
     Route: 065
     Dates: start: 20160930, end: 20160930
  43. MYFORTIC [Suspect]
     Active Substance: MYCOPHENOLATE SODIUM
     Dosage: 1260 MG, QD
     Route: 065
     Dates: start: 20161028, end: 20170101
  44. TACROLIMUS. [Suspect]
     Active Substance: TACROLIMUS
     Dosage: 0.5 MG, QD
     Route: 065
     Dates: start: 20161015, end: 20161015
  45. NIFEDIPINE. [Concomitant]
     Active Substance: NIFEDIPINE
     Dosage: 30 MG, BID
     Route: 048
     Dates: start: 20160401
  46. TRAMADOL HYDROCHLORIDE. [Concomitant]
     Active Substance: TRAMADOL HYDROCHLORIDE
     Indication: PAIN
     Dosage: 0.3 G, QD
     Route: 042
     Dates: start: 20160330, end: 20160330
  47. CEFOXITIN [Concomitant]
     Active Substance: CEFOXITIN SODIUM
     Dosage: 8 G, BID
     Route: 042
     Dates: start: 20160401, end: 20160405
  48. MYFORTIC [Suspect]
     Active Substance: MYCOPHENOLATE SODIUM
     Dosage: 360 MG, UNK
     Route: 048
     Dates: start: 20170115, end: 20170207
  49. MYFORTIC [Suspect]
     Active Substance: MYCOPHENOLATE SODIUM
     Dosage: 1080 MG, QD
     Route: 065
     Dates: start: 20170209, end: 20170216
  50. METHYLPREDNISOLONE. [Suspect]
     Active Substance: METHYLPREDNISOLONE
     Dosage: 50 MG, QD
     Route: 065
     Dates: start: 20161007, end: 20161007
  51. METOPROLOL TARTRATE. [Concomitant]
     Active Substance: METOPROLOL TARTRATE
     Dosage: 25 MG, BID
     Route: 048
     Dates: start: 20160401
  52. SULFADIAZINE. [Concomitant]
     Active Substance: SULFADIAZINE
     Indication: INFECTION
     Dosage: 0.96 G, BID
     Route: 048
     Dates: start: 20160418, end: 20160418
  53. POTASSIUM CHLORIDE. [Concomitant]
     Active Substance: POTASSIUM CHLORIDE
     Indication: PRODUCT USED FOR UNKNOWN INDICATION
     Dosage: 1 G, BID
     Route: 048
     Dates: start: 20160408
  54. SODIUM BICARBONATE. [Concomitant]
     Active Substance: SODIUM BICARBONATE
     Dosage: 125 ML, QD
     Route: 042
     Dates: start: 20160418
  55. CEFACLOR. [Concomitant]
     Active Substance: CEFACLOR
     Dosage: 0.375 G, BID
     Route: 048
     Dates: start: 20160418
  56. NIFEDIPINE. [Concomitant]
     Active Substance: NIFEDIPINE
     Indication: BLOOD PRESSURE INCREASED
     Dosage: 10 MG, QD
     Route: 042
     Dates: start: 20160401, end: 20160401
  57. NIFEDIPINE. [Concomitant]
     Active Substance: NIFEDIPINE
     Dosage: 30 MG, BID
     Route: 042
     Dates: start: 20160401
  58. ISOSORBIDE DINITRATE. [Concomitant]
     Active Substance: ISOSORBIDE DINITRATE
     Indication: CARDIAC DISORDER
     Dosage: 50 MG, QD
     Route: 042
     Dates: start: 20160330, end: 20160330
  59. INSULIN [Concomitant]
     Active Substance: INSULIN NOS
     Dosage: 6 U, BID
     Route: 042
     Dates: start: 20160330
  60. MAGNESIUM ISOGLYCYRRHIZINATE [Concomitant]
     Active Substance: MAGNESIUM ISOGLYCYRRHIZINATE
     Dosage: 100 MG, QD
     Route: 042
     Dates: start: 20160330
  61. CEFOXITIN [Concomitant]
     Active Substance: CEFOXITIN SODIUM
     Indication: PRODUCT USED FOR UNKNOWN INDICATION
     Dosage: 1 G, QD
     Route: 042
     Dates: start: 20160329, end: 20160329
  62. PANTOPRAZOLE SODIUM. [Concomitant]
     Active Substance: PANTOPRAZOLE SODIUM
     Dosage: 40 MG, QD
     Route: 042
     Dates: start: 20160330
  63. FUROSEMIDE. [Concomitant]
     Active Substance: FUROSEMIDE
     Indication: POLYURIA
     Dosage: 80 MG, QD
     Route: 042
     Dates: start: 20160330, end: 20160330
  64. FENTANYL. [Concomitant]
     Active Substance: FENTANYL
     Indication: ANAESTHESIA
     Dosage: 100 UG, QD
     Route: 042
     Dates: start: 20160330, end: 20160330
  65. BASILIXIMAB [Suspect]
     Active Substance: BASILIXIMAB
     Indication: RENAL TRANSPLANT
     Dosage: 20 MG, QD
     Route: 065
     Dates: start: 20160929, end: 20160929
  66. METHYLPREDNISOLONE. [Suspect]
     Active Substance: METHYLPREDNISOLONE
     Indication: IMMUNOSUPPRESSANT DRUG THERAPY
     Dosage: 500 MG, QD
     Route: 065
     Dates: start: 20160930, end: 20160930
  67. TACROLIMUS. [Suspect]
     Active Substance: TACROLIMUS
     Dosage: 5 MG, QD
     Route: 065
     Dates: start: 20161009, end: 20161010
  68. TACROLIMUS. [Suspect]
     Active Substance: TACROLIMUS
     Dosage: 5 MG, QD
     Route: 065
     Dates: start: 20161014, end: 20161014
  69. PROPOFOL. [Concomitant]
     Active Substance: PROPOFOL
     Indication: ANAESTHESIA
     Dosage: 0.2 G, QD
     Route: 042
     Dates: start: 20160330, end: 20160330
  70. PROPOFOL. [Concomitant]
     Active Substance: PROPOFOL
     Dosage: 100 ML, QD
     Route: 042
     Dates: start: 20160330, end: 20160330
  71. MANNITOL. [Concomitant]
     Active Substance: MANNITOL
     Indication: POLYURIA
     Dosage: 250 ML, QD
     Route: 042
     Dates: start: 20160330, end: 20160330
  72. METOPROLOL TARTRATE. [Concomitant]
     Active Substance: METOPROLOL TARTRATE
     Dosage: 25 MG, QD
     Route: 048
     Dates: start: 20160418, end: 20160418
  73. SODIUM BICARBONATE. [Concomitant]
     Active Substance: SODIUM BICARBONATE
     Indication: PRODUCT USED FOR UNKNOWN INDICATION
     Dosage: 250 ML, QD
     Route: 042
     Dates: start: 20160330, end: 20160330
  74. TORASEMIDE [Concomitant]
     Active Substance: TORSEMIDE
     Dosage: 10 MG, QD
     Route: 042
     Dates: start: 20160405
  75. INSULIN [Concomitant]
     Active Substance: INSULIN NOS
     Indication: BLOOD GLUCOSE INCREASED
     Dosage: 6 U, BID
     Route: 042
     Dates: start: 20160329, end: 20160329
  76. CHYMOTRIPSIN [Concomitant]
     Indication: PRODUCT USED FOR UNKNOWN INDICATION
     Dosage: 5 MG, TID
     Route: 055
     Dates: start: 20160409, end: 20160409
  77. CEFOPERAZONE SODIUM AND SULBACTAM SODIUM [Concomitant]
     Active Substance: CEFOPERAZONE SODIUM\SULBACTAM SODIUM
     Dosage: 3 MG, BID
     Route: 042
     Dates: start: 20160401, end: 20160406
  78. FUROSEMIDE. [Concomitant]
     Active Substance: FUROSEMIDE
     Dosage: 20 MG, BID
     Route: 042
     Dates: start: 20160331, end: 20160331
  79. BACILLUS LICHENFORMIS [Concomitant]
     Indication: DIARRHOEA
     Dosage: 0.25 G, TID
     Route: 048
     Dates: start: 20160403
  80. MYFORTIC [Suspect]
     Active Substance: MYCOPHENOLATE SODIUM
     Dosage: 1440 MG, QD
     Route: 065
     Dates: start: 20170208, end: 20170208
  81. PREDNISONE. [Suspect]
     Active Substance: PREDNISONE
     Dosage: 30 MG, QD
     Route: 065
     Dates: start: 20161004, end: 20161008
  82. PREDNISONE. [Suspect]
     Active Substance: PREDNISONE
     Dosage: 25 MG, QD
     Route: 065
     Dates: start: 20161028, end: 20170302
  83. PREDNISONE. [Suspect]
     Active Substance: PREDNISONE
     Dosage: 30 MG, QD
     Route: 065
     Dates: start: 20170303
  84. TACROLIMUS. [Suspect]
     Active Substance: TACROLIMUS
     Dosage: 4 MG, QD
     Route: 065
     Dates: start: 20161011, end: 20161012
  85. TACROLIMUS. [Suspect]
     Active Substance: TACROLIMUS
     Dosage: 6 MG, QD
     Route: 065
     Dates: start: 20161104, end: 20161215
  86. GANCICLOVIR. [Concomitant]
     Active Substance: GANCICLOVIR
     Dosage: 1 G, TID
     Route: 048
     Dates: start: 20160418
  87. SULFADIAZINE. [Concomitant]
     Active Substance: SULFADIAZINE
     Dosage: 0.96 G, BID
     Route: 048
     Dates: start: 20160418
  88. SODIUM LACTATE. [Concomitant]
     Active Substance: SODIUM LACTATE
     Dosage: 500 ML, QD
     Route: 042
     Dates: start: 20160331
  89. CEFOPERAZONE SODIUM AND SULBACTAM SODIUM [Concomitant]
     Active Substance: CEFOPERAZONE SODIUM\SULBACTAM SODIUM
     Indication: PRODUCT USED FOR UNKNOWN INDICATION
     Dosage: 3 G, BID
     Route: 042
     Dates: start: 20160401, end: 20160401
  90. FUROSEMIDE. [Concomitant]
     Active Substance: FUROSEMIDE
     Dosage: 20 MG, QD
     Route: 042
     Dates: start: 20160401, end: 20160401
  91. MIDAZOLAM [Concomitant]
     Active Substance: MIDAZOLAM HYDROCHLORIDE
     Indication: ANAESTHESIA
     Dosage: 5 MG, QD
     Route: 042
     Dates: start: 20160330, end: 20160330
  92. MYFORTIC [Suspect]
     Active Substance: MYCOPHENOLATE SODIUM
     Dosage: 720 UNK, UNK
     Route: 048
     Dates: start: 20170102, end: 20170114
  93. TACROLIMUS. [Suspect]
     Active Substance: TACROLIMUS
     Dosage: 6 MG, QD
     Route: 065
     Dates: start: 20161001, end: 20161008
  94. TACROLIMUS. [Suspect]
     Active Substance: TACROLIMUS
     Dosage: 6 MG, QD
     Route: 065
     Dates: start: 20161013, end: 20161013
  95. TACROLIMUS. [Suspect]
     Active Substance: TACROLIMUS
     Dosage: 4 MG, QD
     Route: 065
     Dates: start: 20161216, end: 20170216
  96. GLYCERIN. [Concomitant]
     Active Substance: GLYCERIN
     Indication: CONSTIPATION
     Dosage: 110 ML, QD
     Route: 065
     Dates: start: 20160329, end: 20160329
  97. HEPARIN SODIUM. [Concomitant]
     Active Substance: HEPARIN SODIUM
     Dosage: 37500 U, QD
     Route: 042
     Dates: start: 20160411, end: 20160411
  98. SODIUM LACTATE. [Concomitant]
     Active Substance: SODIUM LACTATE
     Dosage: 500 ML, 10/D
     Route: 042
     Dates: start: 20160330, end: 20160330
  99. SODIUM BICARBONATE. [Concomitant]
     Active Substance: SODIUM BICARBONATE
     Dosage: 125 ML, QD
     Route: 048
     Dates: start: 20160418, end: 20160418
  100. CEFACLOR. [Concomitant]
     Active Substance: CEFACLOR
     Indication: INFECTION
     Dosage: 0.375 G, BID
     Route: 048
     Dates: start: 20160418, end: 20160418
  101. TROPISETRON HYDROCHLORIDE [Concomitant]
     Active Substance: TROPISETRON HYDROCHLORIDE
     Indication: PRODUCT USED FOR UNKNOWN INDICATION
     Dosage: 15 MG, QD
     Route: 042
     Dates: start: 20160330, end: 20160330
  102. INSULIN [Concomitant]
     Active Substance: INSULIN NOS
     Dosage: 6 U, TID
     Route: 042
     Dates: start: 20160401, end: 20160401
  103. PANTOPRAZOLE SODIUM. [Concomitant]
     Active Substance: PANTOPRAZOLE SODIUM
     Indication: PRODUCT USED FOR UNKNOWN INDICATION
     Dosage: 40 MG, QD
     Route: 042
     Dates: start: 20160330, end: 20160330
  104. PANTOPRAZOLE SODIUM. [Concomitant]
     Active Substance: PANTOPRAZOLE SODIUM
     Dosage: 40 MG, BID
     Route: 042
     Dates: start: 20160330, end: 20160330

REACTIONS (15)
  - Pyrexia [Recovered/Resolved with Sequelae]
  - Dizziness [Recovered/Resolved with Sequelae]
  - Nausea [Recovered/Resolved with Sequelae]
  - Hydronephrosis [Recovered/Resolved]
  - Blood albumin decreased [Unknown]
  - Haemoglobin decreased [Unknown]
  - Urinary tract infection [Unknown]
  - Perinephric collection [Recovered/Resolved]
  - Red blood cells urine positive [Unknown]
  - Lymphocyte count decreased [Unknown]
  - Blood urea increased [Unknown]
  - Protein urine present [Unknown]
  - Vomiting [Recovered/Resolved with Sequelae]
  - Neutrophil count increased [Unknown]
  - Blood creatinine increased [Unknown]

NARRATIVE: CASE EVENT DATE: 20161003
